FAERS Safety Report 17464090 (Version 5)
Quarter: 2021Q1

REPORT INFORMATION
  Report Type: Report from Study
  Country: US (occurrence: US)
  Receive Date: 20200226
  Receipt Date: 20210119
  Transmission Date: 20210419
  Serious: Yes (Other)
  Sender: FDA-Public Use
  Company Number: NVSC2020US053011

PATIENT
  Sex: Female

DRUGS (2)
  1. COSENTYX [Suspect]
     Active Substance: SECUKINUMAB
     Indication: PRODUCT USED FOR UNKNOWN INDICATION
     Dosage: UNK
     Route: 058
  2. METHOTREXATE. [Suspect]
     Active Substance: METHOTREXATE
     Indication: PRODUCT USED FOR UNKNOWN INDICATION
     Dosage: UNK
     Route: 065

REACTIONS (19)
  - Balance disorder [Unknown]
  - Pruritus [Unknown]
  - Rebound psoriasis [Unknown]
  - Hypoacusis [Unknown]
  - Brain injury [Unknown]
  - Pain [Unknown]
  - Vertigo [Unknown]
  - Hypertension [Unknown]
  - Visual impairment [Unknown]
  - Macular degeneration [Unknown]
  - Deafness unilateral [Unknown]
  - Atrial fibrillation [Unknown]
  - Hypothyroidism [Unknown]
  - Chronic kidney disease [Unknown]
  - Neurodegenerative disorder [Unknown]
  - Migraine [Unknown]
  - Cerebrovascular accident [Unknown]
  - Vertigo positional [Unknown]
  - Drug ineffective [Unknown]
